FAERS Safety Report 5383917-3 (Version None)
Quarter: 2007Q3

REPORT INFORMATION
  Report Type: 
  Country: None (occurrence: None)
  Receive Date: 20070702
  Receipt Date: 20070327
  Transmission Date: 20080115
  Serious: No
  Sender: FDA-Public Use
  Company Number: 2007PV032500

PATIENT
  Age: 59 Year
  Sex: Male

DRUGS (4)
  1. SYMLIN [Suspect]
     Indication: TYPE 2 DIABETES MELLITUS
     Dosage: 30 MCG;TID,SC
     Route: 058
     Dates: start: 20070327
  2. HUMALOG [Concomitant]
  3. LANTUS [Concomitant]
  4. ACTOS [Concomitant]

REACTIONS (1)
  - BLOOD GLUCOSE INCREASED [None]
